FAERS Safety Report 14218697 (Version 2)
Quarter: 2017Q4

REPORT INFORMATION
  Report Type: Spontaneous
  Country: US (occurrence: US)
  Receive Date: 20171123
  Receipt Date: 20171211
  Transmission Date: 20180321
  Serious: Yes (Hospitalization, Other)
  Sender: FDA-Public Use
  Company Number: US-JNJFOC-20171118771

PATIENT
  Sex: Male
  Weight: 83.92 kg

DRUGS (4)
  1. XARELTO [Suspect]
     Active Substance: RIVAROXABAN
     Indication: ARRHYTHMIA
     Route: 048
     Dates: start: 2016
  2. XARELTO [Suspect]
     Active Substance: RIVAROXABAN
     Indication: ARRHYTHMIA
     Route: 048
     Dates: start: 201403, end: 2015
  3. ASPIRIN. [Suspect]
     Active Substance: ASPIRIN
     Indication: ARRHYTHMIA
     Route: 065
     Dates: start: 2016
  4. PLAVIX [Suspect]
     Active Substance: CLOPIDOGREL BISULFATE
     Indication: ARRHYTHMIA
     Route: 065
     Dates: start: 2016

REACTIONS (9)
  - Fall [Unknown]
  - Epistaxis [Unknown]
  - Hypoacusis [Not Recovered/Not Resolved]
  - Annuloplasty [Not Recovered/Not Resolved]
  - Hernia repair [Unknown]
  - Arrhythmia [Unknown]
  - Scrotal swelling [Unknown]
  - Contusion [Unknown]
  - Myocardial infarction [Unknown]

NARRATIVE: CASE EVENT DATE: 2014
